FAERS Safety Report 4399358-1 (Version None)
Quarter: 2004Q3

REPORT INFORMATION
  Report Type: 
  Country: None (occurrence: None)
  Receive Date: 20040712
  Receipt Date: 20040628
  Transmission Date: 20050211
  Serious: Yes (Death, Life-Threatening, Hospitalization)
  Sender: FDA-Public Use
  Company Number: 2004043218

PATIENT
  Age: 71 Year
  Sex: Male
  Weight: 46.5 kg

DRUGS (6)
  1. VFEND [Suspect]
     Indication: CANDIDA SEPSIS
     Dosage: 600 MG (300 MCG, 2 IN 1 D), INTRAVENOUS
     Route: 042
     Dates: start: 20040613, end: 20040614
  2. CEFEPIME (CEFEPIME) [Concomitant]
  3. CIPROFLOXACIN [Concomitant]
  4. DIGOXIN [Concomitant]
  5. FAMOTIDINE [Concomitant]
  6. FUROSEMIDE [Concomitant]

REACTIONS (5)
  - ARRHYTHMIA [None]
  - CARDIAC ARREST [None]
  - TORSADE DE POINTES [None]
  - VENTRICULAR FIBRILLATION [None]
  - VENTRICULAR TACHYCARDIA [None]
